FAERS Safety Report 12669316 (Version 1)
Quarter: 2016Q3

REPORT INFORMATION
  Report Type: Spontaneous
  Country: FR (occurrence: FR)
  Receive Date: 20160819
  Receipt Date: 20160819
  Transmission Date: 20161109
  Serious: Yes (Hospitalization, Other)
  Sender: FDA-Public Use
  Company Number: FR-PFIZER INC-2016391396

PATIENT
  Age: 87 Year
  Sex: Female

DRUGS (1)
  1. ORELOX [Suspect]
     Active Substance: CEFPODOXIME
     Indication: INFECTION
     Dosage: 200 MG, 2X/DAY
     Route: 048
     Dates: start: 20160629, end: 20160722

REACTIONS (1)
  - Pemphigoid [Recovered/Resolved]

NARRATIVE: CASE EVENT DATE: 20160711
